FAERS Safety Report 9397026 (Version 1)
Quarter: 2013Q3

REPORT INFORMATION
  Report Type: Spontaneous
  Country: US (occurrence: US)
  Receive Date: 20130712
  Receipt Date: 20130712
  Transmission Date: 20140515
  Serious: Yes (Other)
  Sender: FDA-Public Use
  Company Number: US-ASTRAZENECA-2013SE51026

PATIENT
  Age: 65 Year
  Sex: Male

DRUGS (2)
  1. NEXIUM [Suspect]
     Dosage: 2 PER DAY
     Route: 048
  2. MULTIPLE MEDICATIONS [Concomitant]

REACTIONS (3)
  - Neoplasm malignant [Unknown]
  - Laryngeal cancer [Unknown]
  - Adverse event [Unknown]
